FAERS Safety Report 23321448 (Version 2)
Quarter: 2024Q1

REPORT INFORMATION
  Report Type: Spontaneous
  Country: CA (occurrence: CA)
  Receive Date: 20231220
  Receipt Date: 20240125
  Transmission Date: 20240409
  Serious: Yes (Death, Hospitalization)
  Sender: FDA-Public Use
  Company Number: CA-PFIZER INC-202300446114

PATIENT
  Age: 95 Year
  Sex: Male

DRUGS (5)
  1. CIBINQO [Suspect]
     Active Substance: ABROCITINIB
     Indication: Dermatitis atopic
     Dosage: 100 MG, 1X/DAY
     Route: 048
     Dates: start: 20230516, end: 2023
  2. CIBINQO [Suspect]
     Active Substance: ABROCITINIB
     Dosage: 50 MG, 1X/DAY
     Route: 048
     Dates: start: 2023
  3. BETADERM [Concomitant]
     Active Substance: BETAMETHASONE VALERATE
     Dosage: UNK
  4. CORTODERM [HYDROCORTISONE] [Concomitant]
     Dosage: UNK
  5. SERTRALINE [Concomitant]
     Active Substance: SERTRALINE HYDROCHLORIDE
     Dosage: UNK

REACTIONS (5)
  - Fall [Unknown]
  - Head injury [Unknown]
  - Cerebral haemorrhage [Unknown]
  - Delirium [Recovered/Resolved]
  - Euthanasia [Fatal]

NARRATIVE: CASE EVENT DATE: 20231001
